FAERS Safety Report 17124171 (Version 5)
Quarter: 2025Q2

REPORT INFORMATION
  Report Type: Report from Study
  Country: US (occurrence: US)
  Receive Date: 20191206
  Receipt Date: 20250529
  Transmission Date: 20250716
  Serious: Yes (Other)
  Sender: TAKEDA
  Company Number: US-SHIRE-US201941191

PATIENT
  Sex: Female

DRUGS (2)
  1. ICATIBANT [Suspect]
     Active Substance: ICATIBANT ACETATE
     Indication: Hereditary angioedema
  2. ICATIBANT [Suspect]
     Active Substance: ICATIBANT ACETATE

REACTIONS (7)
  - Cataract [Unknown]
  - Meniscus injury [Unknown]
  - Drug ineffective [Unknown]
  - Breast mass [Not Recovered/Not Resolved]
  - Scar [Recovered/Resolved]
  - Expired product administered [Recovered/Resolved]
  - Hereditary angioedema [Unknown]
